FAERS Safety Report 9144928 (Version 8)
Quarter: 2015Q2

REPORT INFORMATION
  Report Type: Report from Study
  Country: BR (occurrence: BR)
  Receive Date: 20130307
  Receipt Date: 20150409
  Transmission Date: 20150821
  Serious: Yes (Other)
  Sender: FDA-Public Use
  Company Number: BR-BIOGENIDEC-2013BI012065

PATIENT
  Age: 32 Year
  Sex: Female
  Weight: 71 kg

DRUGS (7)
  1. BUSCOPAN [Concomitant]
     Active Substance: BUTYLSCOPOLAMINE BROMIDE
     Indication: ABDOMINAL PAIN
     Route: 048
     Dates: start: 201206, end: 201301
  2. AVONEX [Suspect]
     Active Substance: INTERFERON BETA-1A
     Indication: MULTIPLE SCLEROSIS
     Route: 030
     Dates: start: 201010, end: 20120620
  3. TAMARINE [Concomitant]
     Indication: CONSTIPATION
     Route: 048
     Dates: start: 201206
  4. COMBIRON [Concomitant]
     Active Substance: ASCORBIC ACID\FERROUS SULFATE\FOLIC ACID\PYRIDOXINE HYDROCHLORIDE\RIBOFLAVIN\THIAMINE MONONITRATE
     Indication: PREGNANCY
     Route: 048
     Dates: start: 201206, end: 201210
  5. AVONEX [Suspect]
     Active Substance: INTERFERON BETA-1A
     Indication: MULTIPLE SCLEROSIS
     Route: 030
  6. LUFTAL [Concomitant]
     Indication: ABDOMINAL DISTENSION
     Route: 048
     Dates: start: 201206
  7. CELESTONE [Concomitant]
     Active Substance: BETAMETHASONE
     Indication: PREGNANCY
     Route: 048

REACTIONS (6)
  - Weight decreased [Unknown]
  - Cervical incompetence [Recovered/Resolved]
  - Stress [Unknown]
  - Haemorrhage in pregnancy [Recovered/Resolved]
  - Maternal exposure during pregnancy [Recovered/Resolved]
  - Thyroid disorder [Unknown]

NARRATIVE: CASE EVENT DATE: 20130125
